FAERS Safety Report 6687089-4 (Version None)
Quarter: 2010Q2

REPORT INFORMATION
  Report Type: 
  Country: None (occurrence: None)
  Receive Date: 20100419
  Receipt Date: 20100415
  Transmission Date: 20101027
  Serious: Yes (Other)
  Sender: FDA-Public Use
  Company Number: US-ROXANE LABORATORIES, INC.-2010-RO-00430RO

PATIENT
  Age: 41 Year
  Sex: Female

DRUGS (10)
  1. MORPHINE [Suspect]
     Indication: NEURALGIA
  2. ROXICET [Suspect]
     Indication: NEURALGIA
  3. ROXICET [Suspect]
  4. ACETAMINOPHEN AND HYDROCODONE BITARTRATE [Suspect]
     Indication: NEURALGIA
  5. NABUMETONE [Suspect]
     Indication: NEURALGIA
  6. TIZANIDINE HCL [Suspect]
     Indication: NEURALGIA
  7. AMITRIPTYLINE [Suspect]
     Indication: NEURALGIA
  8. GABAPENTIN [Suspect]
     Indication: NEURALGIA
  9. LIDOCAINE [Concomitant]
     Indication: NERVE BLOCK
  10. LIDOCAINE [Concomitant]

REACTIONS (1)
  - DRUG INEFFECTIVE [None]
